FAERS Safety Report 8416536 (Version 3)
Quarter: 2013Q2

REPORT INFORMATION
  Report Type: Spontaneous
  Country: US (occurrence: US)
  Receive Date: 20120220
  Receipt Date: 20130411
  Transmission Date: 20140414
  Serious: Yes (Hospitalization)
  Sender: FDA-Public Use
  Company Number: US-PFIZER INC-2012041450

PATIENT
  Age: 45 Year
  Sex: Male
  Weight: 104 kg

DRUGS (8)
  1. NEURONTIN [Suspect]
     Indication: NEURALGIA
     Dosage: 1000 MG, CYCLIC (5X/DAY)
  2. BACLOFEN [Concomitant]
     Indication: MUSCLE SPASMS
     Dosage: UNK
  3. AMBIEN [Concomitant]
     Indication: SLEEP DISORDER
     Dosage: UNK
  4. DULOXETINE [Concomitant]
     Dosage: UNK
  5. FUROSEMIDE [Concomitant]
  6. OXYCODONE [Concomitant]
  7. POLYETHYLENE GLYCOL [Concomitant]
  8. VENLAFAXINE [Concomitant]

REACTIONS (1)
  - Nephrolithiasis [Recovered/Resolved]
